FAERS Safety Report 7867432-0 (Version None)
Quarter: 2011Q4

REPORT INFORMATION
  Report Type: 
  Country: None (occurrence: None)
  Receive Date: 20111028
  Receipt Date: 20111019
  Transmission Date: 20120403
  Serious: Yes (Other)
  Sender: FDA-Public Use
  Company Number: GB-MERCK-1110GBR00076

PATIENT
  Age: 36 Year
  Sex: Female

DRUGS (1)
  1. INVANZ [Suspect]
     Route: 041

REACTIONS (3)
  - ADVERSE EVENT [None]
  - PREMATURE LABOUR [None]
  - MATERNAL EXPOSURE DURING PREGNANCY [None]
